FAERS Safety Report 7749962-5 (Version None)
Quarter: 2011Q3

REPORT INFORMATION
  Report Type: 
  Country: None (occurrence: None)
  Receive Date: 20110912
  Receipt Date: 20110830
  Transmission Date: 20111222
  Serious: Yes (Other)
  Sender: FDA-Public Use
  Company Number: 2011SP041085

PATIENT
  Age: 88 Year
  Sex: Male

DRUGS (4)
  1. FUROSEMIDE [Concomitant]
  2. COMBIVENT [Concomitant]
  3. ASMANEX TWISTHALER [Suspect]
     Indication: PRODUCT USED FOR UNKNOWN INDICATION
     Dosage: 220 MCG;HS;
     Dates: start: 20060901
  4. KLOR-CON [Concomitant]

REACTIONS (2)
  - BLINDNESS UNILATERAL [None]
  - CATARACT OPERATION [None]
